FAERS Safety Report 20213568 (Version 1)
Quarter: 2021Q4

REPORT INFORMATION
  Report Type: Spontaneous
  Country: US (occurrence: US)
  Receive Date: 20211221
  Receipt Date: 20211221
  Transmission Date: 20220304
  Serious: Yes (Hospitalization)
  Sender: FDA-Public Use
  Company Number: US-BAYER-2021P000197

PATIENT
  Age: 77 Year
  Sex: Male

DRUGS (1)
  1. KOGENATE FS [Suspect]
     Active Substance: ANTIHEMOPHILIC FACTOR, HUMAN RECOMBINANT
     Dosage: 2344 IU, UNK (RECEIVED 5 DOSES WHILE HOSPITALIZED)
     Dates: start: 20211215, end: 20211217

REACTIONS (1)
  - Hernia repair [None]

NARRATIVE: CASE EVENT DATE: 20211215
